FAERS Safety Report 4839751-3 (Version None)
Quarter: 2005Q4

REPORT INFORMATION
  Report Type: 
  Country: None (occurrence: None)
  Receive Date: 20051129
  Receipt Date: 20050805
  Transmission Date: 20060501
  Serious: No
  Sender: FDA-Public Use
  Company Number: US-GLAXOSMITHKLINE-A0569125A

PATIENT
  Age: 62 Year
  Sex: Male

DRUGS (6)
  1. WELLBUTRIN SR [Suspect]
     Indication: DEPRESSION
     Dosage: 150MG PER DAY
     Route: 048
  2. WELLBUTRIN [Suspect]
     Indication: DEPRESSION
     Dosage: 150MG PER DAY
     Route: 048
  3. COUMADIN [Concomitant]
  4. DIGITEK [Concomitant]
  5. DIAVAN [Concomitant]
  6. COREG [Concomitant]

REACTIONS (1)
  - ARTHRALGIA [None]
